FAERS Safety Report 16021367 (Version 1)
Quarter: 2019Q1

REPORT INFORMATION
  Report Type: Spontaneous
  Country: FR (occurrence: FR)
  Receive Date: 20190301
  Receipt Date: 20190301
  Transmission Date: 20190418
  Serious: Yes (Hospitalization)
  Sender: FDA-Public Use
  Company Number: FR-SUN PHARMACEUTICAL INDUSTRIES LTD-2019RR-200346

PATIENT
  Age: 86 Year
  Sex: Male

DRUGS (4)
  1. THERALENE [Suspect]
     Active Substance: TRIMEPRAZINE
     Indication: PRODUCT USED FOR UNKNOWN INDICATION
     Dosage: ()
     Route: 048
  2. BISOPROLOL [Suspect]
     Active Substance: BISOPROLOL
     Indication: PRODUCT USED FOR UNKNOWN INDICATION
     Dosage: ()
     Route: 048
  3. MIANSERIN [Suspect]
     Active Substance: MIANSERIN
     Indication: PRODUCT USED FOR UNKNOWN INDICATION
     Dosage: ()
     Route: 048
  4. AMLODIPINE [Suspect]
     Active Substance: AMLODIPINE BESYLATE
     Indication: PRODUCT USED FOR UNKNOWN INDICATION
     Dosage: ()
     Route: 048

REACTIONS (1)
  - Orthostatic hypotension [Not Recovered/Not Resolved]

NARRATIVE: CASE EVENT DATE: 20140506
